FAERS Safety Report 8983978 (Version 1)
Quarter: 2012Q4

REPORT INFORMATION
  Report Type: Spontaneous
  Country: DE (occurrence: None)
  Receive Date: 20121212
  Receipt Date: 20121212
  Transmission Date: 20130627
  Serious: Yes (Hospitalization, Disabling, Congenital Anomaly, Other)
  Sender: FDA-Public Use
  Company Number: E2B_00000501

PATIENT
  Sex: Male
  Weight: 3.37 kg

DRUGS (3)
  1. LAMOTRIGINE (LAMOTRIGINE) [Suspect]
     Indication: EPILEPSY
     Route: 064
  2. INSULIN LISPRO (HUMALOG) (UNKNOWN) [Concomitant]
  3. FOLIC ACID (FOLSAN) (UNKNOWN) [Concomitant]

REACTIONS (11)
  - Bradycardia neonatal [None]
  - Congenital central nervous system anomaly [None]
  - Cerebral atrophy [None]
  - Laryngomalacia [None]
  - Retrognathia [None]
  - Convulsion neonatal [None]
  - Atrial septal defect [None]
  - Maternal drugs affecting foetus [None]
  - Caesarean section [None]
  - Hypotonia neonatal [None]
  - Dysphonia [None]
